FAERS Safety Report 5714469-3 (Version None)
Quarter: 2008Q2

REPORT INFORMATION
  Report Type: 
  Country: None (occurrence: None)
  Receive Date: 20080423
  Receipt Date: 20080415
  Transmission Date: 20081010
  Serious: Yes (Other)
  Sender: FDA-Public Use
  Company Number: PHHY2008IT05868

PATIENT
  Age: 70 Year
  Sex: Female

DRUGS (1)
  1. ZOMETA [Suspect]
     Dosage: ONE DOSE EVERY 4 WEEKS
     Route: 042
     Dates: start: 20061006, end: 20080201

REACTIONS (3)
  - ORAL DISORDER [None]
  - OSTEONECROSIS [None]
  - SCINTIGRAPHY [None]
